FAERS Safety Report 5037672-7 (Version None)
Quarter: 2006Q2

REPORT INFORMATION
  Report Type: 
  Country: None (occurrence: None)
  Receive Date: 20060601
  Receipt Date: 20060208
  Transmission Date: 20061013
  Serious: No
  Sender: FDA-Public Use
  Company Number: 2006PV008382

PATIENT
  Age: 42 Year
  Sex: Female
  Weight: 104.3273 kg

DRUGS (2)
  1. BYETTA [Suspect]
     Indication: DIABETES MELLITUS NON-INSULIN-DEPENDENT
     Dosage: 5 MCG;BID;SC
     Route: 058
     Dates: start: 20060207
  2. GLIPIZIDE [Concomitant]

REACTIONS (4)
  - CONSTIPATION [None]
  - INCREASED UPPER AIRWAY SECRETION [None]
  - REGURGITATION OF FOOD [None]
  - SALIVARY HYPERSECRETION [None]
